FAERS Safety Report 10640546 (Version 1)
Quarter: 2014Q4

REPORT INFORMATION
  Report Type: Spontaneous
  Country: GB (occurrence: None)
  Receive Date: 20141205
  Receipt Date: 20141205
  Transmission Date: 20150529
  Serious: Yes (Hospitalization, Other)
  Sender: FDA-Public Use
  Company Number: GB-ZYDUS-005832

PATIENT
  Age: 32 Year
  Sex: Male

DRUGS (3)
  1. SIMVASTATIN. [Suspect]
     Active Substance: SIMVASTATIN
     Route: 048
  2. DILTIAZEM [Suspect]
     Active Substance: DILTIAZEM
     Route: 048
  3. BISOPROLOL (BISOPROLOL) [Suspect]
     Active Substance: BISOPROLOL

REACTIONS (11)
  - Hypotension [None]
  - Respiratory acidosis [None]
  - Myopathy [None]
  - Hypothermia [None]
  - Rhabdomyolysis [None]
  - Bradycardia [None]
  - Hypokalaemia [None]
  - Atrioventricular block complete [None]
  - Metabolic acidosis [None]
  - Intentional overdose [None]
  - Cardiac arrest [None]
